FAERS Safety Report 9127288 (Version 1)
Quarter: 2013Q1

REPORT INFORMATION
  Report Type: Report from Study
  Country: US (occurrence: US)
  Receive Date: 20130228
  Receipt Date: 20130228
  Transmission Date: 20140127
  Serious: No
  Sender: FDA-Public Use
  Company Number: US-VERTEX PHARMACEUTICALS INC.-2013-002778

PATIENT
  Sex: Male
  Weight: 78 kg

DRUGS (10)
  1. VX-950 (TELAPREVIR) [Suspect]
     Indication: HEPATITIS C
     Dosage: 750 MG, TID
     Route: 048
  2. PEGASYS [Suspect]
     Indication: HEPATITIS C
     Dosage: 180 ?G, UNK
     Route: 058
  3. RIBAPAK [Suspect]
     Indication: HEPATITIS C
     Dosage: 1000 DF, QD
  4. NORVASC [Concomitant]
     Dosage: 10 MG, UNK
  5. METFORMIN [Concomitant]
     Dosage: 500 MG, UNK
  6. LISINOPRIL [Concomitant]
     Dosage: 2.5 MG, UNK
  7. XIFAXAN [Concomitant]
     Dosage: 550 MG, UNK
  8. CARAFATE [Concomitant]
     Dosage: 1 G, UNK
  9. OMEPRAZOLE [Concomitant]
     Dosage: 20 MG, UNK
  10. SPIRIVA HANDIHALER [Concomitant]

REACTIONS (5)
  - Headache [Unknown]
  - Influenza like illness [Unknown]
  - Fatigue [Unknown]
  - Rash macular [Unknown]
  - Pruritus [Not Recovered/Not Resolved]
